FAERS Safety Report 10307740 (Version 1)
Quarter: 2014Q3

REPORT INFORMATION
  Report Type: Spontaneous
  Country: ES (occurrence: ES)
  Receive Date: 20140716
  Receipt Date: 20140716
  Transmission Date: 20150326
  Serious: Yes (Other)
  Sender: FDA-Public Use
  Company Number: ES-ROCHE-1433684

PATIENT
  Age: 78 Year
  Sex: Female

DRUGS (3)
  1. XELODA [Suspect]
     Active Substance: CAPECITABINE
     Indication: ADENOCARCINOMA OF COLON
     Dosage: 2000 MG IN THE MORNING AND 1500 MG IN THE EVENING
     Route: 048
     Dates: start: 20140425
  2. CAPECITABINE [Suspect]
     Active Substance: CAPECITABINE
     Indication: ADENOCARCINOMA OF COLON
     Dosage: 2000 MG IN THE MORNING AND 1500 MG IN THE EVENING
     Route: 048
     Dates: start: 20140520
  3. CAPECITABINE [Suspect]
     Active Substance: CAPECITABINE
     Dosage: OSE REDUCED
     Route: 048
     Dates: start: 20140610

REACTIONS (1)
  - Rheumatoid arthritis [Recovering/Resolving]

NARRATIVE: CASE EVENT DATE: 20140513
